FAERS Safety Report 9148816 (Version 2)
Quarter: 2013Q1

REPORT INFORMATION
  Report Type: Spontaneous
  Country: TR (occurrence: TR)
  Receive Date: 20130308
  Receipt Date: 20130319
  Transmission Date: 20140127
  Serious: Yes (Death, Hospitalization)
  Sender: FDA-Public Use
  Company Number: PHHY2012TR049828

PATIENT
  Age: 88 Year
  Sex: Female

DRUGS (1)
  1. RIVASTIGMINE [Suspect]
     Indication: DEMENTIA ALZHEIMER^S TYPE

REACTIONS (7)
  - Death [Fatal]
  - Mitral valve incompetence [Unknown]
  - Ejection fraction decreased [Unknown]
  - Atrioventricular block second degree [Unknown]
  - Syncope [Recovered/Resolved]
  - Bradycardia [Unknown]
  - Bradyarrhythmia [Unknown]
